FAERS Safety Report 6898256-9 (Version None)
Quarter: 2010Q3

REPORT INFORMATION
  Report Type: 
  Country: None (occurrence: None)
  Receive Date: 20100729
  Receipt Date: 20100721
  Transmission Date: 20110219
  Serious: Yes (Other)
  Sender: FDA-Public Use
  Company Number: IMP_05054_2010

PATIENT
  Sex: Female
  Weight: 68.0396 kg

DRUGS (4)
  1. BUPROPION HCL [Suspect]
     Indication: ANXIETY
     Dosage: 300 MG QD ORAL
     Route: 048
     Dates: start: 20100301, end: 20100501
  2. BUPROPION HCL [Suspect]
     Indication: DEPRESSION
     Dosage: 300 MG QD ORAL
     Route: 048
     Dates: start: 20100301, end: 20100501
  3. CITALOPRAM HYDROBROMIDE [Concomitant]
  4. CONTRACEPTIVES [Concomitant]

REACTIONS (5)
  - AGITATION [None]
  - ANXIETY [None]
  - DEPRESSION [None]
  - EMOTIONAL DISORDER [None]
  - PRODUCT SUBSTITUTION ISSUE [None]
